FAERS Safety Report 7953531-1 (Version None)
Quarter: 2011Q4

REPORT INFORMATION
  Report Type: 
  Country: None (occurrence: None)
  Receive Date: 20111202
  Receipt Date: 20111130
  Transmission Date: 20120403
  Serious: Yes (Other)
  Sender: FDA-Public Use
  Company Number: US-PFIZER INC-2011292819

PATIENT
  Sex: Female
  Weight: 97.51 kg

DRUGS (1)
  1. LIPITOR [Suspect]
     Dosage: 60MG, UNK

REACTIONS (9)
  - MULTI-ORGAN FAILURE [None]
  - MUSCLE INJURY [None]
  - MUSCULOSKELETAL DISORDER [None]
  - APPARENT DEATH [None]
  - RENAL FAILURE [None]
  - HEPATIC FAILURE [None]
  - SYNCOPE [None]
  - RHABDOMYOLYSIS [None]
  - RENAL DISORDER [None]
